FAERS Safety Report 6451811-2 (Version None)
Quarter: 2009Q4

REPORT INFORMATION
  Report Type: 
  Country: None (occurrence: None)
  Receive Date: 20091123
  Receipt Date: 20091119
  Transmission Date: 20100525
  Serious: Yes (Hospitalization, Other)
  Sender: FDA-Public Use
  Company Number: US-B.I. PHARMACEUTICALS,INC./RIDGEFIELD-2009-BP-13305BP

PATIENT
  Sex: Male

DRUGS (3)
  1. SPIRIVA [Suspect]
     Dosage: 18 MCG
     Route: 055
     Dates: start: 20050101
  2. OMEPRAZOLE [Concomitant]
     Indication: GASTROOESOPHAGEAL REFLUX DISEASE
  3. METOPROLOL TARTRATE [Concomitant]
     Indication: MYOCARDIAL INFARCTION

REACTIONS (8)
  - ANXIETY [None]
  - AORTIC ANEURYSM [None]
  - CONSTIPATION [None]
  - DYSPHAGIA [None]
  - DYSPNOEA [None]
  - GENERAL PHYSICAL HEALTH DETERIORATION [None]
  - OSTEOPOROSIS [None]
  - SPUTUM INCREASED [None]
